FAERS Safety Report 25871688 (Version 2)
Quarter: 2025Q4

REPORT INFORMATION
  Report Type: Report from Study
  Country: US (occurrence: US)
  Receive Date: 20251001
  Receipt Date: 20251013
  Transmission Date: 20260117
  Serious: Yes (Other)
  Sender: EISAI
  Company Number: US-Eisai-EC-2025-197189

PATIENT
  Age: 78 Year
  Sex: Male

DRUGS (13)
  1. LENVIMA [Suspect]
     Active Substance: LENVATINIB
     Indication: Product used for unknown indication
     Route: 048
     Dates: start: 2025, end: 2025
  2. ADVAIR DISKUS [Concomitant]
     Active Substance: FLUTICASONE PROPIONATE\SALMETEROL XINAFOATE
     Dosage: ADVAIR DISKU AEP 250-50MC
  3. ALBUTEROL [Concomitant]
     Active Substance: ALBUTEROL
     Dosage: AER 108 (90
  4. ATENOLOL [Concomitant]
     Active Substance: ATENOLOL
  5. IPRATROPIUM [Concomitant]
     Active Substance: IPRATROPIUM
     Dosage: SOL 0.5-2.5
  6. JANUMET [Concomitant]
     Active Substance: METFORMIN HYDROCHLORIDE\SITAGLIPTIN PHOSPHATE
     Dosage: 50-500MG
  7. JARDIANCE [Concomitant]
     Active Substance: EMPAGLIFLOZIN
  8. MAGNESIUM [Concomitant]
     Active Substance: MAGNESIUM
  9. OMEPRAZOLE [Concomitant]
     Active Substance: OMEPRAZOLE
  10. POTASSIUM [Concomitant]
     Active Substance: POTASSIUM
  11. SIMVASTATIN [Concomitant]
     Active Substance: SIMVASTATIN
  12. TRAZODONE [Concomitant]
     Active Substance: TRAZODONE HYDROCHLORIDE
  13. VITAMIN D3 [Concomitant]
     Active Substance: CHOLECALCIFEROL

REACTIONS (3)
  - Electrocardiogram QT prolonged [Recovered/Resolved]
  - Hypertension [Recovered/Resolved]
  - Heart rate decreased [Recovered/Resolved]

NARRATIVE: CASE EVENT DATE: 20250101
